FAERS Safety Report 8413278-4 (Version None)
Quarter: 2012Q2

REPORT INFORMATION
  Report Type: 
  Country: None (occurrence: None)
  Receive Date: 20120605
  Receipt Date: 20120529
  Transmission Date: 20120825
  Serious: Yes (Other)
  Sender: FDA-Public Use
  Company Number: CHNY2012JP000571

PATIENT
  Age: 88 Year
  Sex: Female

DRUGS (2)
  1. VOLTAREN [Suspect]
     Indication: MYALGIA
     Dosage: 5 DF DAILY
     Route: 061
     Dates: start: 20120426, end: 20120427
  2. NAPAGELN [Concomitant]
     Indication: MYALGIA
     Dosage: UNK
     Route: 061
     Dates: start: 20120426, end: 20120428

REACTIONS (4)
  - OEDEMA [None]
  - DERMATITIS CONTACT [None]
  - OVERDOSE [None]
  - SKIN EROSION [None]
